FAERS Safety Report 12147485 (Version 1)
Quarter: 2016Q1

REPORT INFORMATION
  Report Type: Spontaneous
  Country: BR (occurrence: BR)
  Receive Date: 20160304
  Receipt Date: 20160304
  Transmission Date: 20160526
  Serious: Yes (Other)
  Sender: FDA-Public Use
  Company Number: BR-GLAXOSMITHKLINE-BR2016GSK031303

PATIENT
  Age: 42 Year
  Sex: Male

DRUGS (7)
  1. BUPROPION. [Interacting]
     Active Substance: BUPROPION
     Dosage: 450 UNK, UNK
  2. CLONAZEPAM. [Interacting]
     Active Substance: CLONAZEPAM
     Dosage: 4 MG, QD
  3. BUPROPION. [Interacting]
     Active Substance: BUPROPION
     Dosage: 2250 MG, UNK
     Route: 048
  4. VALPROIC ACID. [Interacting]
     Active Substance: VALPROIC ACID
     Dosage: 1500 MG, QD
  5. CLONAZEPAM. [Interacting]
     Active Substance: CLONAZEPAM
     Dosage: 20 MG, QD
  6. BUPROPION. [Suspect]
     Active Substance: BUPROPION
     Indication: WITHDRAWAL SYNDROME
     Dosage: 300 MG, QD
     Route: 048
  7. RISPERIDONE. [Concomitant]
     Active Substance: RISPERIDONE
     Dosage: 2 MG, QD

REACTIONS (4)
  - Overdose [Unknown]
  - Dependence [Unknown]
  - Drug interaction [Unknown]
  - Anxiety [Unknown]
